FAERS Safety Report 17896729 (Version 1)
Quarter: 2020Q2

REPORT INFORMATION
  Report Type: Report from Study
  Country: US (occurrence: US)
  Receive Date: 20200615
  Receipt Date: 20200615
  Transmission Date: 20200714
  Serious: Yes (Hospitalization)
  Sender: FDA-Public Use
  Company Number: US-EISAI MEDICAL RESEARCH-EC-2020-074278

PATIENT
  Age: 45 Year
  Sex: Male

DRUGS (6)
  1. LENVIMA [Suspect]
     Active Substance: LENVATINIB
     Route: 048
     Dates: start: 20200430, end: 202005
  2. LENVIMA [Suspect]
     Active Substance: LENVATINIB
     Route: 048
     Dates: start: 20200603
  3. MITOTANE [Concomitant]
     Active Substance: MITOTANE
  4. METOPROLOL. [Concomitant]
     Active Substance: METOPROLOL
  5. LENVIMA [Suspect]
     Active Substance: LENVATINIB
     Indication: ADRENAL GLAND CANCER
     Route: 048
     Dates: start: 20200407, end: 20200429
  6. AMLODIPINE [Concomitant]
     Active Substance: AMLODIPINE BESYLATE

REACTIONS (9)
  - Impaired healing [Unknown]
  - Nausea [Recovered/Resolved]
  - Dysphonia [Recovered/Resolved]
  - Blood pressure increased [Recovering/Resolving]
  - Hypothyroidism [Not Recovered/Not Resolved]
  - Blood testosterone decreased [Not Recovered/Not Resolved]
  - Dehydration [Not Recovered/Not Resolved]
  - Hepatic enzyme increased [Recovering/Resolving]
  - Decreased appetite [Recovered/Resolved]

NARRATIVE: CASE EVENT DATE: 2020
